FAERS Safety Report 9209236 (Version 1)
Quarter: 2013Q1

REPORT INFORMATION
  Report Type: Spontaneous
  Country: US (occurrence: None)
  Receive Date: 20120817
  Receipt Date: 20120817
  Transmission Date: 20140127
  Serious: Yes (Hospitalization, Other)
  Sender: FDA-Public Use
  Company Number: 201111159

PATIENT
  Age: 33 Year
  Sex: Female

DRUGS (1)
  1. LIORESAL INTRATHECAL (BACLOFEN INJECTION) 2000 MCG/ML [Suspect]
     Indication: MUSCLE RELAXANT THERAPY
     Route: 037

REACTIONS (5)
  - Drug withdrawal syndrome [None]
  - Insomnia [None]
  - Muscle spasms [None]
  - Musculoskeletal stiffness [None]
  - Pruritus [None]
